FAERS Safety Report 13531907 (Version 2)
Quarter: 2017Q2

REPORT INFORMATION
  Report Type: Report from Study
  Country: TR (occurrence: TR)
  Receive Date: 20170510
  Receipt Date: 20170606
  Transmission Date: 20170830
  Serious: Yes (Hospitalization, Other)
  Sender: FDA-Public Use
  Company Number: TR-ALEXION-A201704769

PATIENT
  Age: 3 Month
  Sex: Male
  Weight: 4.5 kg

DRUGS (1)
  1. ENB-0040 [Suspect]
     Active Substance: ASFOTASE ALFA
     Indication: HYPOPHOSPHATASIA
     Dosage: 2 MG/KG, Q 3 DAYS
     Route: 058
     Dates: start: 20170404

REACTIONS (3)
  - Seizure [Recovered/Resolved]
  - Respiratory distress [Unknown]
  - Tachypnoea [Unknown]

NARRATIVE: CASE EVENT DATE: 201705
